FAERS Safety Report 6096414-7 (Version None)
Quarter: 2009Q1

REPORT INFORMATION
  Report Type: 
  Country: None (occurrence: None)
  Receive Date: 20090227
  Receipt Date: 20081211
  Transmission Date: 20090719
  Serious: No
  Sender: FDA-Public Use
  Company Number: A0760013A

PATIENT
  Age: 45 Year
  Sex: Male

DRUGS (4)
  1. LAMICTAL [Suspect]
     Indication: DEPRESSION
     Dosage: 175MG PER DAY
     Route: 048
     Dates: start: 20071001, end: 20081014
  2. WELLBUTRIN [Concomitant]
  3. UNSPECIFIED MEDICATION [Concomitant]
  4. TRAZODONE HCL [Concomitant]

REACTIONS (3)
  - AMNESIA [None]
  - CONFUSIONAL STATE [None]
  - DISABILITY [None]
